FAERS Safety Report 23704708 (Version 5)
Quarter: 2024Q4

REPORT INFORMATION
  Report Type: Spontaneous
  Country: US (occurrence: US)
  Receive Date: 20240404
  Receipt Date: 20241022
  Transmission Date: 20250115
  Serious: No
  Sender: SANOFI AVENTIS
  Company Number: US-SA-SAC20240401000157

PATIENT
  Age: 49 Year
  Sex: Female
  Weight: 76.65 kg

DRUGS (10)
  1. DUPIXENT [Suspect]
     Active Substance: DUPILUMAB
     Indication: Neurodermatitis
     Dosage: 300 MG, QOW
     Route: 058
     Dates: start: 20240119
  2. DUPIXENT [Suspect]
     Active Substance: DUPILUMAB
     Indication: Dermatitis atopic
  3. LORAZEPAM [Concomitant]
     Active Substance: LORAZEPAM
     Dosage: UNK
  4. LORAZEPAM [Concomitant]
     Active Substance: LORAZEPAM
  5. BENZOYL PEROXIDE [Concomitant]
     Active Substance: BENZOYL PEROXIDE
     Dosage: UNK
  6. BENZOYL PEROXIDE [Concomitant]
     Active Substance: BENZOYL PEROXIDE
  7. TRETINOIN [Concomitant]
     Active Substance: TRETINOIN
     Dosage: UNK
  8. TRETINOIN [Concomitant]
     Active Substance: TRETINOIN
  9. ESTRADIOL [Concomitant]
     Active Substance: ESTRADIOL
  10. PROGESTERONE [Concomitant]
     Active Substance: PROGESTERONE

REACTIONS (8)
  - Pruritus [Recovered/Resolved]
  - Skin exfoliation [Not Recovered/Not Resolved]
  - Eczema [Unknown]
  - Pruritus [Not Recovered/Not Resolved]
  - Therapeutic response shortened [Unknown]
  - Dermatitis atopic [Unknown]
  - Skin laceration [Unknown]
  - Injection site pain [Not Recovered/Not Resolved]

NARRATIVE: CASE EVENT DATE: 20240101
